FAERS Safety Report 12628688 (Version 1)
Quarter: 2016Q3

REPORT INFORMATION
  Report Type: Spontaneous
  Country: US (occurrence: None)
  Receive Date: 20160805
  Receipt Date: 20160805
  Transmission Date: 20161109
  Serious: Yes (Other)
  Sender: FDA-Public Use
  Company Number: None

PATIENT
  Age: 86 Year
  Sex: Female
  Weight: 81.65 kg

DRUGS (3)
  1. VITAMINS [Concomitant]
     Active Substance: VITAMINS
  2. COLCHICINE, .6 MG PRASKO [Suspect]
     Active Substance: COLCHICINE
     Indication: GOUT
     Dosage: 30  TABLET(S)  TAKE 2/ 1@2HRS TAKEN BY MOUTH
     Route: 048
     Dates: start: 20160803, end: 20160803
  3. LISINAPRIL HCTC [Concomitant]

REACTIONS (3)
  - Fatigue [None]
  - Vomiting [None]
  - Abdominal pain upper [None]

NARRATIVE: CASE EVENT DATE: 20160803
